FAERS Safety Report 10250369 (Version 1)
Quarter: 2014Q2

REPORT INFORMATION
  Report Type: Spontaneous
  Country: JP (occurrence: JP)
  Receive Date: 20140620
  Receipt Date: 20140620
  Transmission Date: 20141212
  Serious: Yes (Other)
  Sender: FDA-Public Use
  Company Number: JP-AMGEN-JPNOT2014046247

PATIENT
  Age: 59 Year
  Sex: Male
  Weight: 66 kg

DRUGS (7)
  1. GRAN [Suspect]
     Indication: NEUTROPENIA
     Dosage: 300 MUG, QD
     Route: 041
     Dates: start: 20140605, end: 20140605
  2. SEISHOKU [Suspect]
     Indication: MEDICATION DILUTION
     Dosage: 100 ML, QD
     Route: 041
     Dates: start: 20140605, end: 20140605
  3. BLOSTAR M [Concomitant]
     Dosage: UNK
     Route: 048
  4. SENNOSIDE                          /00571901/ [Concomitant]
     Dosage: UNK
     Route: 048
  5. ZYLORIC [Concomitant]
     Dosage: UNK
     Route: 048
  6. BARACLUDE [Concomitant]
     Dosage: UNK
     Route: 048
  7. DIOVAN [Concomitant]
     Dosage: UNK
     Route: 048

REACTIONS (1)
  - Hypotension [Recovered/Resolved]
